FAERS Safety Report 8234333-8 (Version None)
Quarter: 2012Q1

REPORT INFORMATION
  Report Type: 
  Country: None (occurrence: None)
  Receive Date: 20120326
  Receipt Date: 20120316
  Transmission Date: 20120608
  Serious: Yes (Other)
  Sender: FDA-Public Use
  Company Number: US-JNJFOC-20120308776

PATIENT
  Age: 55 Year
  Sex: Female

DRUGS (11)
  1. CYCLOBENZAPRINE HCL [Concomitant]
  2. PROZAC [Concomitant]
  3. WELLBUTRIN XL [Concomitant]
     Route: 048
  4. NORCO [Concomitant]
     Route: 048
  5. M.V.I. [Concomitant]
  6. LYRICA [Concomitant]
     Route: 048
  7. XARELTO [Suspect]
     Indication: KNEE ARTHROPLASTY
     Route: 048
     Dates: start: 20120301, end: 20120301
  8. VICODIN [Concomitant]
     Route: 048
  9. LYRICA [Concomitant]
     Route: 048
  10. TRAZODONE HCL [Concomitant]
     Route: 048
  11. MAXZIDE [Concomitant]

REACTIONS (1)
  - DEEP VEIN THROMBOSIS [None]
